FAERS Safety Report 10585014 (Version 1)
Quarter: 2014Q4

REPORT INFORMATION
  Report Type: Spontaneous
  Country: US (occurrence: US)
  Receive Date: 20141114
  Receipt Date: 20141114
  Transmission Date: 20150529
  Serious: No
  Sender: FDA-Public Use
  Company Number: US-009507513-1411USA006144

PATIENT

DRUGS (1)
  1. VITAMINS A AND D OINTMENT [Suspect]
     Active Substance: PETROLATUM
     Indication: DERMATITIS DIAPER
     Dosage: UNK, UNKNOWN
     Route: 061

REACTIONS (1)
  - Drug ineffective [Unknown]
